FAERS Safety Report 11103574 (Version 1)
Quarter: 2015Q2

REPORT INFORMATION
  Report Type: Spontaneous
  Country: US (occurrence: None)
  Receive Date: 20150508
  Receipt Date: 20150508
  Transmission Date: 20150821
  Serious: Yes (Other)
  Sender: FDA-Public Use
  Company Number: None

PATIENT
  Age: 33 Year
  Sex: Female
  Weight: 108.86 kg

DRUGS (16)
  1. MONTELUKAST [Concomitant]
     Active Substance: MONTELUKAST SODIUM
  2. OMEPRAZOLE. [Concomitant]
     Active Substance: OMEPRAZOLE
  3. OXYBUTYNIN [Concomitant]
     Active Substance: OXYBUTYNIN
  4. MAG-OXIDE [Concomitant]
  5. DOCQLACE [Concomitant]
     Active Substance: DOCUSATE SODIUM
  6. HYDROXYZINE [Concomitant]
     Active Substance: HYDROXYZINE\HYDROXYZINE HYDROCHLORIDE
  7. MELATONIN [Concomitant]
     Active Substance: MELATONIN
  8. ADVAIR HFA [Concomitant]
     Active Substance: FLUTICASONE PROPIONATE\SALMETEROL XINAFOATE
  9. LEVOTHYROXINE [Concomitant]
     Active Substance: LEVOTHYROXINE
  10. LORATADINE. [Concomitant]
     Active Substance: LORATADINE
  11. SERTRALINE [Concomitant]
     Active Substance: SERTRALINE HYDROCHLORIDE
  12. LABETALOL [Concomitant]
     Active Substance: LABETALOL\LABETALOL HYDROCHLORIDE
  13. HYDROCODONE HYDROCODONE 5/325MG [Suspect]
     Active Substance: HYDROCODONE
     Indication: SPINAL FRACTURE
     Route: 048
     Dates: start: 20140228, end: 20150320
  14. DIPHENHYDRAMINE [Concomitant]
     Active Substance: DIPHENHYDRAMINE
  15. ALBUTEROL INHALER [Concomitant]
     Active Substance: ALBUTEROL
  16. PRENATAL [Concomitant]
     Active Substance: VITAMINS

REACTIONS (1)
  - False positive investigation result [None]

NARRATIVE: CASE EVENT DATE: 20150310
